FAERS Safety Report 12582450 (Version 2)
Quarter: 2016Q3

REPORT INFORMATION
  Report Type: Spontaneous
  Country: US (occurrence: US)
  Receive Date: 20160722
  Receipt Date: 20160901
  Transmission Date: 20161109
  Serious: Yes (Hospitalization)
  Sender: FDA-Public Use
  Company Number: US-BRISTOL-MYERS SQUIBB COMPANY-BMS-2016-057633

PATIENT
  Age: 62 Year
  Sex: Female

DRUGS (1)
  1. ETOPOPHOS [Suspect]
     Active Substance: ETOPOSIDE PHOSPHATE
     Indication: OVARIAN CANCER
     Dosage: 150 MG/M2, UNK
     Route: 042
     Dates: start: 20160510

REACTIONS (2)
  - Product use issue [Unknown]
  - Vomiting [Unknown]

NARRATIVE: CASE EVENT DATE: 20160510
